FAERS Safety Report 8214999-9 (Version None)
Quarter: 2012Q1

REPORT INFORMATION
  Report Type: 
  Country: None (occurrence: None)
  Receive Date: 20120316
  Receipt Date: 20120312
  Transmission Date: 20120608
  Serious: Yes (Other)
  Sender: FDA-Public Use
  Company Number: CN-BAYER-2012-023653

PATIENT
  Age: 52 Year
  Sex: Female

DRUGS (1)
  1. GLUCOBAY [Suspect]
     Indication: TYPE 2 DIABETES MELLITUS
     Dosage: 1 DF, TID
     Route: 048
     Dates: start: 20050101

REACTIONS (4)
  - DUODENAL ULCER [None]
  - ASTHMA [None]
  - ABDOMINAL DISCOMFORT [None]
  - GASTRITIS [None]
